FAERS Safety Report 8670361 (Version 2)
Quarter: 2012Q4

REPORT INFORMATION
  Report Type: 
  Country: US (occurrence: US)
  Receive Date: 20120718
  Receipt Date: 20120924
  Transmission Date: 20130627
  Serious: Yes (Death)
  Sender: FDA-Public Use
  Company Number: US-ROCHE-1088219

PATIENT
  Sex: Female

DRUGS (7)
  1. LUCENTIS [Suspect]
     Indication: DIABETIC RETINOPATHY
     Route: 050
     Dates: start: 20081117, end: 20081117
  2. LUCENTIS [Suspect]
     Indication: VITREOUS HAEMORRHAGE
  3. TARCEVA [Concomitant]
  4. HYDROXYZINE [Concomitant]
  5. NORMOSAN [Concomitant]
  6. CLARITHROMYCIN [Concomitant]
  7. CLORAZINE [Concomitant]

REACTIONS (1)
  - Death [Fatal]
